FAERS Safety Report 4778451-5 (Version None)
Quarter: 2005Q3

REPORT INFORMATION
  Report Type: 
  Country: None (occurrence: None)
  Receive Date: 20050923
  Receipt Date: 20050923
  Transmission Date: 20060218
  Serious: Yes (Hospitalization)
  Sender: FDA-Public Use
  Company Number: None

PATIENT
  Age: 64 Year
  Sex: Male
  Weight: 97 kg

DRUGS (1)
  1. TEGASEROD MALEATE   6MG    NOVARTIS [Suspect]
     Indication: CONSTIPATION
     Dosage: 6MG  BID  F   PO
     Route: 048
     Dates: start: 20050709, end: 20050909

REACTIONS (1)
  - CHOLECYSTITIS [None]
